FAERS Safety Report 18855197 (Version 1)
Quarter: 2021Q1

REPORT INFORMATION
  Report Type: Spontaneous
  Country: FR (occurrence: FR)
  Receive Date: 20210206
  Receipt Date: 20210206
  Transmission Date: 20210420
  Serious: Yes (Other)
  Sender: FDA-Public Use
  Company Number: FR-MSNLABS-2021MSNLIT00026

PATIENT

DRUGS (2)
  1. POTASSIUM CITRATE. [Interacting]
     Active Substance: POTASSIUM CITRATE
     Indication: URINE ALKALINISATION THERAPY
     Route: 065
  2. TERIFLUNOMIDE TABLETS 14 MG [Suspect]
     Active Substance: TERIFLUNOMIDE
     Indication: RELAPSING-REMITTING MULTIPLE SCLEROSIS
     Route: 065

REACTIONS (1)
  - Nephrolithiasis [None]
